FAERS Safety Report 9419655 (Version 2)
Quarter: 2013Q3

REPORT INFORMATION
  Report Type: Spontaneous
  Country: GB (occurrence: GB)
  Receive Date: 20130725
  Receipt Date: 20130805
  Transmission Date: 20140515
  Serious: Yes (Life-Threatening, Hospitalization)
  Sender: FDA-Public Use
  Company Number: PHFR2013GB003560

PATIENT
  Sex: Male

DRUGS (6)
  1. CLOZARIL [Suspect]
     Indication: SCHIZOPHRENIA
     Dosage: UNK
     Route: 048
     Dates: start: 20030217
  2. CLOZARIL [Suspect]
     Dosage: 300 UNK, UNK
  3. CITALOPRAM [Concomitant]
     Indication: DEPRESSED MOOD
     Dosage: 40 MG, UNK
     Route: 048
  4. CLONAZEPAM [Concomitant]
     Indication: ANXIETY
     Dosage: 0.5 MG, UNK
     Route: 048
  5. WARFARIN [Concomitant]
     Indication: PULMONARY EMBOLISM
     Dosage: UNK
     Route: 048
  6. WARFARIN [Concomitant]
     Indication: DEEP VEIN THROMBOSIS

REACTIONS (4)
  - Pain in extremity [Recovered/Resolved]
  - Pulmonary embolism [Unknown]
  - Dyspnoea [Recovered/Resolved]
  - Circulatory collapse [Recovered/Resolved]
